FAERS Safety Report 22073259 (Version 3)
Quarter: 2023Q2

REPORT INFORMATION
  Report Type: Report from Study
  Country: CA (occurrence: CA)
  Receive Date: 20230308
  Receipt Date: 20230529
  Transmission Date: 20230721
  Serious: Yes (Other)
  Sender: FDA-Public Use
  Company Number: CA-TAKEDA-2022TUS060689

PATIENT
  Age: 36 Year
  Sex: Female

DRUGS (5)
  1. VEDOLIZUMAB [Suspect]
     Active Substance: VEDOLIZUMAB
     Indication: Colitis ulcerative
     Dosage: 300 MILLIGRAM
     Route: 042
     Dates: start: 20220428
  2. VEDOLIZUMAB [Suspect]
     Active Substance: VEDOLIZUMAB
     Indication: Colitis ulcerative
     Dosage: 108 MILLIGRAM
     Route: 058
     Dates: start: 20220809
  3. Salofalk [Concomitant]
     Dosage: UNK
     Dates: start: 20100101
  4. Salofalk [Concomitant]
     Dosage: UNK
     Dates: start: 2012, end: 2020
  5. Salofalk [Concomitant]
     Dosage: UNK
     Dates: start: 2020

REACTIONS (6)
  - Colitis ulcerative [Unknown]
  - Injection site vesicles [Unknown]
  - Injection site pain [Unknown]
  - Injection site warmth [Unknown]
  - Skin fragility [Unknown]
  - Injection site erythema [Unknown]
